FAERS Safety Report 10243040 (Version 1)
Quarter: 2014Q2

REPORT INFORMATION
  Report Type: Spontaneous
  Country: NO (occurrence: None)
  Receive Date: 20140613
  Receipt Date: 20140613
  Transmission Date: 20141212
  Serious: Yes (Other)
  Sender: FDA-Public Use
  Company Number: FK201402302

PATIENT
  Age: 18 Year
  Sex: Male

DRUGS (10)
  1. CYTARABINE (CYTARABINE) [Suspect]
     Indication: PRECURSOR T-LYMPHOBLASTIC LYMPHOMA/LEUKAEMIA
     Route: 042
  2. DOXORUBICIN (DOXORUBICIN) [Suspect]
     Indication: PRECURSOR T-LYMPHOBLASTIC LYMPHOMA/LEUKAEMIA
     Route: 042
  3. DAUNORUBICIN (DAUNORUBICIN) [Suspect]
     Indication: PRECURSOR T-LYMPHOBLASTIC LYMPHOMA/LEUKAEMIA
     Route: 042
  4. VINCRISTINE SULFATE (VINCRISTINE SULFATE) [Suspect]
     Indication: PRECURSOR T-LYMPHOBLASTIC LYMPHOMA/LEUKAEMIA
     Route: 042
  5. PREDNISONE (PREDNISONE) [Suspect]
     Indication: PRECURSOR T-LYMPHOBLASTIC LYMPHOMA/LEUKAEMIA
     Route: 037
  6. L-ASPARAGINASE (ASPARAGINASE) (UNKNOWN) (ASPARAGINASE) [Suspect]
     Indication: PRECURSOR T-LYMPHOBLASTIC LYMPHOMA/LEUKAEMIA
     Route: 042
  7. METHOTREXATE (METHOTREXATE) [Suspect]
     Indication: PRECURSOR T-LYMPHOBLASTIC LYMPHOMA/LEUKAEMIA
     Route: 037
  8. THIOGUANINE [Suspect]
     Indication: PRECURSOR T-LYMPHOBLASTIC LYMPHOMA/LEUKAEMIA
     Route: 042
  9. CYCLOPHOSPHAMIDE (CYCLOPHOSPHAMIDE) [Suspect]
     Indication: PRECURSOR T-LYMPHOBLASTIC LYMPHOMA/LEUKAEMIA
     Route: 042
  10. G-CSF (GRANULOCYTE COLONY STIMULATING FACTOR) [Suspect]
     Indication: PERIPHERAL BLOOD STEM CELL APHERESIS

REACTIONS (2)
  - Febrile neutropenia [None]
  - Haematotoxicity [None]
